FAERS Safety Report 4534219-6 (Version None)
Quarter: 2004Q4

REPORT INFORMATION
  Report Type: 
  Country: None (occurrence: None)
  Receive Date: 20041221
  Receipt Date: 20041221
  Transmission Date: 20050328
  Serious: Yes (Other)
  Sender: FDA-Public Use
  Company Number: None

PATIENT
  Sex: Female
  Weight: 71.6683 kg

DRUGS (1)
  1. YASMIN [Suspect]
     Indication: CONTRACEPTION
     Dosage: 1 TABLET DAILY   ORAL
     Route: 048
     Dates: start: 20040801, end: 20041123

REACTIONS (2)
  - POLYURIA [None]
  - URINARY TRACT INFECTION [None]
